FAERS Safety Report 5712439-2 (Version None)
Quarter: 2008Q2

REPORT INFORMATION
  Report Type: 
  Country: None (occurrence: None)
  Receive Date: 20080422
  Receipt Date: 20080414
  Transmission Date: 20081010
  Serious: Yes (Other)
  Sender: FDA-Public Use
  Company Number: US-ROCHE-541241

PATIENT
  Sex: Male
  Weight: 72.6 kg

DRUGS (5)
  1. ACCUTANE [Suspect]
     Indication: ACNE
     Route: 065
     Dates: start: 19960110, end: 19960515
  2. ACCUTANE [Suspect]
     Route: 065
     Dates: start: 19960516, end: 19960801
  3. ACCUTANE [Suspect]
     Route: 065
     Dates: start: 19991220, end: 20000105
  4. ACCUTANE [Suspect]
     Route: 065
     Dates: start: 20000106, end: 20000119
  5. ACCUTANE [Suspect]
     Route: 065
     Dates: start: 20000120, end: 20000214

REACTIONS (14)
  - ACNE [None]
  - ALANINE AMINOTRANSFERASE INCREASED [None]
  - ASPARTATE AMINOTRANSFERASE INCREASED [None]
  - BACK PAIN [None]
  - COLITIS ULCERATIVE [None]
  - DEPRESSION [None]
  - EMOTIONAL DISTRESS [None]
  - GASTRITIS [None]
  - GASTROOESOPHAGEAL REFLUX DISEASE [None]
  - HIATUS HERNIA [None]
  - INFLAMMATORY BOWEL DISEASE [None]
  - PHARYNGOLARYNGEAL PAIN [None]
  - PROCTITIS ULCERATIVE [None]
  - SUICIDAL IDEATION [None]
